FAERS Safety Report 9702436 (Version 1)
Quarter: 2013Q4

REPORT INFORMATION
  Report Type: Report from Study
  Country: CA (occurrence: CA)
  Receive Date: 20131121
  Receipt Date: 20131121
  Transmission Date: 20140711
  Serious: Yes (Hospitalization)
  Sender: FDA-Public Use
  Company Number: CA-JNJFOC-20131111420

PATIENT
  Age: 49 Year
  Sex: Female
  Weight: 72 kg

DRUGS (3)
  1. REMICADE [Suspect]
     Indication: CROHN^S DISEASE
     Dosage: THE START DATE OF INFLIXIMAB WAS 24 (MONTH AND YEAR UNSPECIFIED).
     Route: 042
  2. IMURAN [Concomitant]
     Route: 065
  3. VITAMINS NOS [Concomitant]
     Route: 065

REACTIONS (2)
  - Appendicitis [Recovered/Resolved]
  - Intestinal polyp [Recovered/Resolved]
